FAERS Safety Report 11064108 (Version 1)
Quarter: 2015Q2

REPORT INFORMATION
  Report Type: Spontaneous
  Country: JP (occurrence: JP)
  Receive Date: 20150424
  Receipt Date: 20150424
  Transmission Date: 20150821
  Serious: Yes (Death, Life-Threatening)
  Sender: FDA-Public Use
  Company Number: JP-AMGEN-JPNSP2015039911

PATIENT

DRUGS (1)
  1. NESP [Suspect]
     Active Substance: DARBEPOETIN ALFA
     Indication: MYELODYSPLASTIC SYNDROME
     Dosage: 240 MUG, QWK
     Route: 058
     Dates: start: 20150330, end: 20150330

REACTIONS (1)
  - Acute leukaemia [Fatal]

NARRATIVE: CASE EVENT DATE: 201504
